FAERS Safety Report 10248279 (Version 1)
Quarter: 2014Q2

REPORT INFORMATION
  Report Type: Spontaneous
  Country: DE (occurrence: DE)
  Receive Date: 20140620
  Receipt Date: 20140620
  Transmission Date: 20141212
  Serious: Yes (Hospitalization)
  Sender: FDA-Public Use
  Company Number: DE-UCBSA-2014001924

PATIENT
  Age: 64 Year
  Sex: Female

DRUGS (1)
  1. LEVETIRACETAM UCB [Suspect]
     Dosage: 500 MG, UNK

REACTIONS (11)
  - Iron deficiency anaemia [Unknown]
  - Coordination abnormal [Unknown]
  - Irritability [Unknown]
  - Muscle spasms [Unknown]
  - Tremor [Unknown]
  - Cough [Unknown]
  - Rash [Unknown]
  - Eczema [Unknown]
  - Myalgia [Unknown]
  - Full blood count decreased [Unknown]
  - Pruritus [Unknown]
